FAERS Safety Report 8568696 (Version 2)
Quarter: 2014Q1

REPORT INFORMATION
  Report Type: Spontaneous
  Country: US (occurrence: None)
  Receive Date: 20120323
  Receipt Date: 20130305
  Transmission Date: 20141002
  Serious: Yes (Other)
  Sender: FDA-Public Use
  Company Number: 163-21880-11113189

PATIENT
  Age: 64 Year
  Sex: Male

DRUGS (1)
  1. REVLIMID [Suspect]
     Indication: PLASMA CELL MYELOMA
     Dosage: 25 MG, DAYS 1-21 OF 28 DAY CYCLE, PO
     Route: 048
     Dates: start: 20111024, end: 201111

REACTIONS (4)
  - Anaemia [None]
  - Thrombosis [None]
  - Influenza like illness [None]
  - Thrombosis [None]
